FAERS Safety Report 8474588 (Version 3)
Quarter: 2013Q1

REPORT INFORMATION
  Report Type: Spontaneous
  Country: BR (occurrence: BR)
  Receive Date: 20120323
  Receipt Date: 20130114
  Transmission Date: 20140127
  Serious: Yes (Hospitalization, Other)
  Sender: FDA-Public Use
  Company Number: BR-ROCHE-1048152

PATIENT
  Age: 46 Year
  Sex: Female

DRUGS (8)
  1. XOLAIR [Suspect]
     Indication: ASTHMA
     Route: 065
     Dates: start: 20110601
  2. XOLAIR [Suspect]
     Indication: RHINITIS
  3. XOLAIR [Suspect]
     Indication: CHRONIC SINUSITIS
  4. RINOSORO [Concomitant]
  5. AVAMYS [Concomitant]
     Route: 065
  6. RELESTAT [Concomitant]
  7. SERETIDE [Concomitant]
     Dosage: 50/500 MG
     Route: 065
  8. BILASTINE [Concomitant]
     Route: 065
     Dates: start: 20101011

REACTIONS (11)
  - Malaise [Recovering/Resolving]
  - Influenza [Recovering/Resolving]
  - Sinusitis [Recovering/Resolving]
  - Chest pain [Recovering/Resolving]
  - Back pain [Recovering/Resolving]
  - Headache [Recovering/Resolving]
  - Asthma [Recovering/Resolving]
  - Fatigue [Recovering/Resolving]
  - Dyspnoea [Recovering/Resolving]
  - Chronic sinusitis [Recovering/Resolving]
  - Rhinitis allergic [Recovering/Resolving]
